FAERS Safety Report 24879613 (Version 2)
Quarter: 2025Q3

REPORT INFORMATION
  Report Type: Report from Study
  Country: US (occurrence: US)
  Receive Date: 20250123
  Receipt Date: 20250803
  Transmission Date: 20251021
  Serious: Yes (Hospitalization, Other)
  Sender: ALEXION PHARMACEUTICALS
  Company Number: US-AstraZeneca-CH-00785104A

PATIENT
  Age: 69 Year
  Sex: Male

DRUGS (1)
  1. BENRALIZUMAB [Suspect]
     Active Substance: BENRALIZUMAB
     Route: 065

REACTIONS (3)
  - Product dose omission issue [Unknown]
  - Asthma [Unknown]
  - Pneumonia [Unknown]

NARRATIVE: CASE EVENT DATE: 20241108
